FAERS Safety Report 8800899 (Version 1)
Quarter: 2012Q4

REPORT INFORMATION
  Report Type: 
  Country: US (occurrence: US)
  Receive Date: 20120921
  Receipt Date: 20120921
  Transmission Date: 20130627
  Serious: Yes (Other)
  Sender: FDA-Public Use
  Company Number: US-PERRIGO-12US008058

PATIENT
  Age: 23 Year
  Sex: Male
  Weight: 71.2 kg

DRUGS (3)
  1. LICE COMBO 866/9K1/0N8 PK 173 [Suspect]
     Indication: PROPHYLAXIS
     Dosage: 1 application
     Route: 061
     Dates: start: 20120911, end: 20120911
  2. LICE COMBO 866/9K1/0N8 PK 173 [Suspect]
     Indication: PROPHYLAXIS
     Dosage: UNK
     Route: 065
     Dates: start: 20120911, end: 20120911
  3. ALBUTEROL [Concomitant]
     Indication: ASTHMA
     Dosage: PRN
     Route: 055

REACTIONS (3)
  - Asthma [Recovered/Resolved]
  - Cough [Recovered/Resolved]
  - Off label use [Recovered/Resolved]
